FAERS Safety Report 6153751-5 (Version None)
Quarter: 2009Q2

REPORT INFORMATION
  Report Type: 
  Country: None (occurrence: None)
  Receive Date: 20090410
  Receipt Date: 20090331
  Transmission Date: 20091009
  Serious: Yes (Other)
  Sender: FDA-Public Use
  Company Number: DSA_33446_2009

PATIENT
  Sex: Male

DRUGS (1)
  1. CARDIZEM [Suspect]
     Indication: DRUG USE FOR UNKNOWN INDICATION
     Dosage: (120 MG,)
     Dates: start: 20090201

REACTIONS (5)
  - BUCCAL MUCOSAL ROUGHENING [None]
  - DYSGEUSIA [None]
  - GINGIVAL PAIN [None]
  - PHARYNGEAL OEDEMA [None]
  - TONGUE DRY [None]
